FAERS Safety Report 7903015-1 (Version None)
Quarter: 2011Q4

REPORT INFORMATION
  Report Type: 
  Country: None (occurrence: None)
  Receive Date: 20111109
  Receipt Date: 20111027
  Transmission Date: 20120403
  Serious: Yes (Hospitalization, Other)
  Sender: FDA-Public Use
  Company Number: CA-ELI_LILLY_AND_COMPANY-CA201110007928

PATIENT
  Age: 74 Year
  Sex: Female

DRUGS (8)
  1. ATORVASTATIN [Concomitant]
  2. PANTOPRAZOLE [Concomitant]
  3. FORTEO [Suspect]
     Indication: OSTEOPOROSIS
     Dosage: 20 UG, QD
     Route: 058
     Dates: start: 20110718, end: 20111014
  4. COUMADIN [Concomitant]
  5. FOLIC ACID [Concomitant]
  6. MORPHINE [Concomitant]
  7. PREDNISONE [Concomitant]
  8. METHOTREXATE [Concomitant]

REACTIONS (4)
  - THROMBOSIS [None]
  - OESOPHAGEAL RUPTURE [None]
  - OESOPHAGEAL ULCER [None]
  - CHEST PAIN [None]
